FAERS Safety Report 22955430 (Version 3)
Quarter: 2023Q4

REPORT INFORMATION
  Report Type: Spontaneous
  Country: FR (occurrence: FR)
  Receive Date: 20230918
  Receipt Date: 20231115
  Transmission Date: 20240110
  Serious: Yes (Hospitalization)
  Sender: FDA-Public Use
  Company Number: FR-WOODWARD-2023-FR-000148

PATIENT
  Age: 63 Year
  Sex: Male

DRUGS (7)
  1. RABEPRAZOLE SODIUM [Suspect]
     Active Substance: RABEPRAZOLE SODIUM
     Indication: Prophylaxis
     Dosage: 20 MG, DAILY
     Route: 048
     Dates: end: 2023
  2. FOLIC ACID [Suspect]
     Active Substance: FOLIC ACID
     Dosage: 1.428 MILLIGRAM(S) (10 MILLIGRAM(S), 1 IN 1 WEEK)
     Route: 048
     Dates: end: 20230730
  3. NAPROXEN [Suspect]
     Active Substance: NAPROXEN
     Dosage: 775 MG, 1 IN 1 AS NECESSARY
     Route: 048
     Dates: end: 2023
  4. HULIO [Suspect]
     Active Substance: ADALIMUMAB-FKJP
     Dosage: 2.857 MILLIGRAMS(S) (40 MILLIGRAM(S), 1 IN 14 DAY)
     Route: 058
     Dates: start: 202304, end: 2023
  5. METHOTREXATE SODIUM [Suspect]
     Active Substance: METHOTREXATE SODIUM
     Dosage: 0.142 DOSAGE FORM (1 DOSAGE FORM, 1 IN 7 DAY)
     Route: 058
     Dates: start: 2009, end: 20230730
  6. PREDNISONE [Concomitant]
     Active Substance: PREDNISONE
     Dosage: 10.0 MILLIGRAM(S) (10 MILLIGRAM(S), 1 IN 1 DAY); INCREASED DOSE AND FREQUENCY UNKNOWN
     Route: 048
  7. HUMIRA [Suspect]
     Active Substance: ADALIMUMAB
     Dosage: 0.071 DOSAGE FORM (1 DOSAGE FORM, 1 IN 14 DAY)
     Route: 058

REACTIONS (1)
  - Interstitial lung disease [Recovering/Resolving]

NARRATIVE: CASE EVENT DATE: 20230728
